FAERS Safety Report 4370517-7 (Version None)
Quarter: 2004Q2

REPORT INFORMATION
  Report Type: 
  Country: None (occurrence: None)
  Receive Date: 20040528
  Receipt Date: 20040514
  Transmission Date: 20050107
  Serious: Yes (Hospitalization, Other)
  Sender: FDA-Public Use
  Company Number: DSA_80590_2004

PATIENT
  Age: 55 Year
  Sex: Female
  Weight: 89 kg

DRUGS (19)
  1. XYREM [Suspect]
     Indication: SLEEP DISORDER
     Dosage: 7.5 G NIGHTLY PO
     Route: 048
     Dates: start: 20040103
  2. XYREM [Suspect]
     Indication: SLEEP DISORDER
     Dosage: 6 G NIGHTLY PO
     Route: 048
     Dates: end: 20040309
  3. MAXZIDE [Concomitant]
  4. MULTIVITAMIN [Concomitant]
  5. CLARITIN [Concomitant]
  6. COLACE [Concomitant]
  7. GUCOSAMINE SULFATE [Concomitant]
  8. METHADONE HCL [Concomitant]
  9. PANATOL [Concomitant]
  10. SYNTHROID [Concomitant]
  11. MAXALT [Concomitant]
  12. ROXILOX [Concomitant]
  13. VALIUM [Concomitant]
  14. CLONAZEPAM [Concomitant]
  15. REGLAN [Concomitant]
  16. ERYTHROMYACIN ETHYLSUCCINATE [Concomitant]
  17. AMERGE [Concomitant]
  18. METROGEL [Concomitant]
  19. TETRACYCLINE [Concomitant]

REACTIONS (12)
  - AGITATION [None]
  - CONFUSIONAL STATE [None]
  - CONVULSION [None]
  - DIZZINESS [None]
  - DRUG TOXICITY [None]
  - ELECTROENCEPHALOGRAM ABNORMAL [None]
  - FATIGUE [None]
  - HYPOMANIA [None]
  - INAPPROPRIATE AFFECT [None]
  - MANIA [None]
  - SPEECH DISORDER [None]
  - THOUGHT BLOCKING [None]
